FAERS Safety Report 5879058-9 (Version None)
Quarter: 2008Q3

REPORT INFORMATION
  Report Type: 
  Country: None (occurrence: None)
  Receive Date: 20080912
  Receipt Date: 20080902
  Transmission Date: 20090109
  Serious: Yes (Hospitalization)
  Sender: FDA-Public Use
  Company Number: US-NOVOPROD-279077

PATIENT
  Age: 71 Year
  Sex: Male

DRUGS (1)
  1. LEVEMIR [Suspect]
     Indication: INSULIN-REQUIRING TYPE 2 DIABETES MELLITUS
     Dosage: 25 IU, QD
     Route: 058
     Dates: start: 20060101

REACTIONS (6)
  - BONE PAIN [None]
  - CEREBROVASCULAR ACCIDENT [None]
  - FLATULENCE [None]
  - MASS [None]
  - RASH [None]
  - TOOTH LOSS [None]
